FAERS Safety Report 4986188-2 (Version None)
Quarter: 2006Q2

REPORT INFORMATION
  Report Type: 
  Country: None (occurrence: None)
  Receive Date: 20060428
  Receipt Date: 20050609
  Transmission Date: 20061013
  Serious: Yes (Hospitalization, Disabling)
  Sender: FDA-Public Use
  Company Number: US-MERCK-0506USA01552

PATIENT
  Sex: Male
  Weight: 80 kg

DRUGS (2)
  1. VIOXX [Suspect]
     Indication: ARTHRITIS
     Route: 048
     Dates: start: 20001001, end: 20030101
  2. VIOXX [Suspect]
     Indication: PAIN IN EXTREMITY
     Route: 048
     Dates: start: 20001001, end: 20030101

REACTIONS (10)
  - CORONARY ARTERY DISEASE [None]
  - DEPRESSION [None]
  - DYSPEPSIA [None]
  - HYPERLIPIDAEMIA [None]
  - IMPAIRED WORK ABILITY [None]
  - INFECTIOUS MONONUCLEOSIS [None]
  - INSOMNIA [None]
  - MYOCARDIAL INFARCTION [None]
  - PAIN IN EXTREMITY [None]
  - REFUSAL OF TREATMENT BY PATIENT [None]
